FAERS Safety Report 17198356 (Version 1)
Quarter: 2019Q4

REPORT INFORMATION
  Report Type: Spontaneous
  Country: SE (occurrence: SE)
  Receive Date: 20191225
  Receipt Date: 20191225
  Transmission Date: 20200122
  Serious: Yes (Hospitalization)
  Sender: FDA-Public Use
  Company Number: SE-TEVA-2019-SE-1156522

PATIENT
  Age: 15 Year
  Sex: Female

DRUGS (3)
  1. THERALEN [Suspect]
     Active Substance: TRIMEPRAZINE
     Dosage: 90 X 5 MG
     Route: 048
     Dates: start: 20180117, end: 20180117
  2. PREGABALIN. [Suspect]
     Active Substance: PREGABALIN
     Dosage: POSSIBLY 1 TABLET
     Route: 048
     Dates: start: 20180117, end: 20180117
  3. LERGIGAN (PROMETHAZINE HYDROCHLORIDE) [Suspect]
     Active Substance: PROMETHAZINE HYDROCHLORIDE
     Dosage: 100 ST
     Route: 048
     Dates: start: 20180117, end: 20180117

REACTIONS (10)
  - Loss of consciousness [Unknown]
  - Confusional state [Unknown]
  - Intentional overdose [Unknown]
  - Tachypnoea [Unknown]
  - Intentional self-injury [Unknown]
  - Hallucination [Unknown]
  - Hyperreflexia [Unknown]
  - Muscle twitching [Unknown]
  - Mydriasis [Unknown]
  - Tachycardia [Unknown]

NARRATIVE: CASE EVENT DATE: 20180117
